FAERS Safety Report 9610708 (Version 1)
Quarter: 2013Q4

REPORT INFORMATION
  Report Type: Spontaneous
  Country: DE (occurrence: DE)
  Receive Date: 20131009
  Receipt Date: 20131009
  Transmission Date: 20140711
  Serious: Yes (Hospitalization)
  Sender: FDA-Public Use
  Company Number: GXKR2013DE003221

PATIENT
  Age: 63 Year
  Sex: Female
  Weight: 69 kg

DRUGS (8)
  1. SPIRONOLACTON [Suspect]
     Indication: CARDIAC FAILURE
     Dosage: 50 MG, QD
     Route: 048
     Dates: start: 20130820, end: 20130912
  2. SPRYCEL//DASATINIB [Suspect]
     Indication: CHRONIC MYELOID LEUKAEMIA
     Dosage: 100 MG, QD
     Route: 048
  3. L THYROXIN [Concomitant]
     Dosage: 50 UG, QD
     Route: 048
  4. RAMIPRIL [Concomitant]
     Dosage: 5 MG, BID
     Route: 048
  5. METOPROLOL SUCCINATE [Concomitant]
     Dosage: 47.5 MG, BID
     Route: 048
  6. PANTOPRAZOL [Concomitant]
     Indication: GASTRITIS
     Dosage: 40 MG, QD
     Route: 048
  7. TORASEMID [Concomitant]
     Dosage: 10 MG, QD
     Route: 048
  8. FORMOTEROL [Concomitant]
     Indication: CHRONIC OBSTRUCTIVE PULMONARY DISEASE
     Dosage: 12 MG, BID
     Route: 055

REACTIONS (4)
  - Mucosal haemorrhage [Recovering/Resolving]
  - Petechiae [Recovering/Resolving]
  - Diarrhoea [Recovering/Resolving]
  - Vomiting [Recovering/Resolving]
